FAERS Safety Report 10150560 (Version 1)
Quarter: 2014Q2

REPORT INFORMATION
  Report Type: Spontaneous
  Country: US (occurrence: US)
  Receive Date: 20140502
  Receipt Date: 20140502
  Transmission Date: 20141212
  Serious: No
  Sender: FDA-Public Use
  Company Number: US-BAXTER-2014BAX021153

PATIENT
  Age: 0 Year
  Sex: Male
  Weight: 65 kg

DRUGS (1)
  1. DIANEAL LOW CALCIUM [Suspect]
     Indication: PERITONEAL DIALYSIS
     Route: 033

REACTIONS (3)
  - Product deposit [Unknown]
  - Poor quality drug administered [Unknown]
  - No adverse event [Unknown]
